FAERS Safety Report 19455118 (Version 4)
Quarter: 2023Q4

REPORT INFORMATION
  Report Type: Spontaneous
  Country: US (occurrence: US)
  Receive Date: 20210623
  Receipt Date: 20231109
  Transmission Date: 20240110
  Serious: Yes (Hospitalization, Other)
  Sender: FDA-Public Use
  Company Number: US-PFIZER INC-2021263074

PATIENT
  Age: 59 Year
  Sex: Female
  Weight: 104.3 kg

DRUGS (19)
  1. IBRANCE [Suspect]
     Active Substance: PALBOCICLIB
     Indication: Breast cancer female
     Dosage: 100 MG, CYCLIC (EVERY DAY ON DAYS 1 THROUGH 21 EVERY 28 DAYS)
     Route: 048
     Dates: start: 202012, end: 2022
  2. IBRANCE [Suspect]
     Active Substance: PALBOCICLIB
     Dosage: 75 MG, CYCLIC (1 P.O.Q. DAY, DAYS 1-21 EVERY 28 DAY)
     Route: 048
  3. CLONAZEPAM [Concomitant]
     Active Substance: CLONAZEPAM
     Dosage: 0.5 MG
  4. CYMBALTA [Concomitant]
     Active Substance: DULOXETINE HYDROCHLORIDE
     Dosage: 20 MG
  5. GABAPENTIN [Concomitant]
     Active Substance: GABAPENTIN
     Dosage: UNK [100 % POWDER]
  6. LETROZOLE [Concomitant]
     Active Substance: LETROZOLE
     Dosage: UNK [100% POWDER]
  7. LASIX [Concomitant]
     Active Substance: FUROSEMIDE
     Dosage: 20 MG
  8. MELATONIN [Concomitant]
     Active Substance: MELATONIN
     Dosage: UNK [100 % POWDER]
  9. MAGNESIUM [Concomitant]
     Active Substance: MAGNESIUM
     Dosage: 100 MG
  10. OMEPRAZOLE [Concomitant]
     Active Substance: OMEPRAZOLE
     Dosage: UNK [100 % POWDER]
  11. OXYCODONE HYDROCHLORIDE [Concomitant]
     Active Substance: OXYCODONE HYDROCHLORIDE
     Dosage: 10 MG
  12. DIETARY SUPPLEMENT\PROBIOTICS [Concomitant]
     Active Substance: DIETARY SUPPLEMENT\PROBIOTICS NOS
     Dosage: UNK
  13. POTASSIUM CHLORIDE [Concomitant]
     Active Substance: POTASSIUM CHLORIDE
     Dosage: 10 MEQ
  14. ASCORBIC ACID [Concomitant]
     Active Substance: ASCORBIC ACID
     Dosage: 1000 MG
  15. VITAMIN D3 [Concomitant]
     Active Substance: CHOLECALCIFEROL
     Dosage: 10 UG
  16. VITAMIN B1 [Concomitant]
     Active Substance: THIAMINE HYDROCHLORIDE
     Dosage: 100 MG
  17. TRAZODONE [Concomitant]
     Active Substance: TRAZODONE HYDROCHLORIDE
     Dosage: 100 MG
  18. XARELTO [Concomitant]
     Active Substance: RIVAROXABAN
     Dosage: 10 MG
  19. VITAMINS [Concomitant]
     Active Substance: VITAMINS

REACTIONS (8)
  - Lower limb fracture [Unknown]
  - Fall [Unknown]
  - Blood bilirubin increased [Unknown]
  - Dry mouth [Unknown]
  - Somnolence [Unknown]
  - Insomnia [Unknown]
  - Tremor [Recovering/Resolving]
  - Pain [Unknown]

NARRATIVE: CASE EVENT DATE: 20210304
